FAERS Safety Report 11103581 (Version 1)
Quarter: 2015Q2

REPORT INFORMATION
  Report Type: Spontaneous
  Country: FR (occurrence: FR)
  Receive Date: 20150511
  Receipt Date: 20150511
  Transmission Date: 20150821
  Serious: Yes (Other)
  Sender: FDA-Public Use
  Company Number: FR-GLAXOSMITHKLINE-FR2015GSK061128

PATIENT
  Age: 44 Year
  Sex: Female

DRUGS (5)
  1. ALPRAZOLAM ALPHARMA [Concomitant]
  2. CLAMOXYL [Suspect]
     Active Substance: AMOXICILLIN\CLAVULANIC ACID
     Indication: TOOTH ABSCESS
     Dosage: UNK
     Route: 048
     Dates: start: 20150415, end: 20150417
  3. KLIPAL [Suspect]
     Active Substance: ACETAMINOPHEN\CODEINE PHOSPHATE
     Indication: TOOTH ABSCESS
     Dosage: 300 MG, UNK
     Route: 048
     Dates: start: 20150415, end: 20150417
  4. LAMICTAL [Suspect]
     Active Substance: LAMOTRIGINE
     Indication: PRODUCT USED FOR UNKNOWN INDICATION
     Dosage: 50 MG, QD
     Route: 048
     Dates: start: 20150401, end: 20150417
  5. ANAFRANIL [Concomitant]
     Active Substance: CLOMIPRAMINE HYDROCHLORIDE
     Dosage: 25 MG, QD
     Dates: start: 20150330

REACTIONS (3)
  - Rash [Recovered/Resolved]
  - Haematoma [Recovered/Resolved]
  - Pruritus [Recovered/Resolved]

NARRATIVE: CASE EVENT DATE: 201504
